FAERS Safety Report 16924804 (Version 2)
Quarter: 2019Q4

REPORT INFORMATION
  Report Type: Spontaneous
  Country: US (occurrence: US)
  Receive Date: 20191016
  Receipt Date: 20191217
  Transmission Date: 20200122
  Serious: No
  Sender: FDA-Public Use
  Company Number: US-PFIZER INC-2019443896

PATIENT
  Age: 71 Year
  Sex: Male
  Weight: 80.73 kg

DRUGS (2)
  1. XELJANZ XR [Suspect]
     Active Substance: TOFACITINIB CITRATE
     Indication: ARTHRITIS
     Dosage: 11 MG, 1X/DAY
     Dates: start: 201903
  2. PREDNISONE. [Concomitant]
     Active Substance: PREDNISONE
     Dosage: 4 MG, DAILY (4 TAB A DAY 1 MG)

REACTIONS (4)
  - Peripheral swelling [Not Recovered/Not Resolved]
  - Off label use [Unknown]
  - Pain [Unknown]
  - Product use in unapproved indication [Unknown]
